FAERS Safety Report 21816149 (Version 1)
Quarter: 2023Q1

REPORT INFORMATION
  Report Type: Report from Study
  Country: US (occurrence: US)
  Receive Date: 20230104
  Receipt Date: 20230104
  Transmission Date: 20230417
  Serious: No
  Sender: FDA-Public Use
  Company Number: US-ABBVIE-4216014

PATIENT
  Age: 76 Year
  Sex: Female

DRUGS (1)
  1. SYNTHROID [Suspect]
     Active Substance: LEVOTHYROXINE SODIUM
     Indication: Hypothyroidism
     Dosage: 25 MICROGRAM
     Route: 048
     Dates: start: 202209

REACTIONS (6)
  - Lip dry [Recovering/Resolving]
  - Pain [Unknown]
  - Hypophagia [Unknown]
  - Oral mucosal blistering [Unknown]
  - Dry mouth [Recovering/Resolving]
  - Lip blister [Unknown]

NARRATIVE: CASE EVENT DATE: 20220914
